FAERS Safety Report 9765116 (Version 1)
Quarter: 2013Q4

REPORT INFORMATION
  Report Type: Spontaneous
  Country: US (occurrence: None)
  Receive Date: 20131216
  Receipt Date: 20131216
  Transmission Date: 20140711
  Serious: Yes (Disabling)
  Sender: FDA-Public Use
  Company Number: None

PATIENT
  Age: 79 Year
  Sex: Female
  Weight: 79.38 kg

DRUGS (1)
  1. LIPITOR [Suspect]
     Indication: BLOOD CHOLESTEROL ABNORMAL
     Dosage: 1 TABLET DAILY, ONCE DAILY, TAKEN BY MOUTH
     Route: 048
     Dates: start: 20120510, end: 20120516

REACTIONS (7)
  - Vomiting [None]
  - Diarrhoea [None]
  - Irritable bowel syndrome [None]
  - Quality of life decreased [None]
  - Fear [None]
  - Weight decreased [None]
  - Impaired work ability [None]
